FAERS Safety Report 6366363-5 (Version None)
Quarter: 2009Q3

REPORT INFORMATION
  Report Type: 
  Country: None (occurrence: None)
  Receive Date: 20090921
  Receipt Date: 20090916
  Transmission Date: 20100115
  Serious: Yes (Hospitalization)
  Sender: FDA-Public Use
  Company Number: US-AMGEN-STX364884

PATIENT
  Sex: Male

DRUGS (14)
  1. SENSIPAR [Suspect]
     Indication: HYPERPARATHYROIDISM SECONDARY
  2. ZEMPLAR [Concomitant]
  3. PHOSLO [Concomitant]
  4. MAGNESIUM OXIDE [Concomitant]
  5. ASPIRIN [Concomitant]
  6. COREG [Concomitant]
  7. DIOVAN [Concomitant]
  8. EFFEXOR [Concomitant]
  9. MYCELEX [Concomitant]
  10. NEPHRO-VITE [Concomitant]
  11. NITROGLYCERIN [Concomitant]
  12. OXYCODONE HCL [Concomitant]
  13. PRILOSEC [Concomitant]
  14. RITALIN [Concomitant]

REACTIONS (2)
  - GASTROINTESTINAL TUBE INSERTION [None]
  - HOSPITALISATION [None]
